FAERS Safety Report 17205004 (Version 4)
Quarter: 2022Q2

REPORT INFORMATION
  Report Type: Spontaneous
  Country: US (occurrence: US)
  Receive Date: 20191227
  Receipt Date: 20220405
  Transmission Date: 20220721
  Serious: Yes (Hospitalization, Other)
  Sender: FDA-Public Use
  Company Number: NVSC2019US080429

PATIENT
  Age: 20 Year
  Sex: Male
  Weight: 97 kg

DRUGS (9)
  1. KYMRIAH [Suspect]
     Active Substance: TISAGENLECLEUCEL
     Indication: Acute lymphocytic leukaemia
     Dosage: 1 DF, ONCE/SINGLE (1.66 X 10E6/KG (2 EQUALLY SPLIT BAGS WITHOUT AE))
     Route: 042
     Dates: start: 20190826, end: 20190826
  2. KYMRIAH [Suspect]
     Active Substance: TISAGENLECLEUCEL
     Dosage: 1 DF, ONCE/SINGLE
     Route: 042
     Dates: start: 20190923, end: 20190923
  3. ACYCLOVIR [Concomitant]
     Active Substance: ACYCLOVIR
     Indication: Prophylaxis
     Dosage: 400 MG, QD
     Route: 048
     Dates: start: 20190825, end: 20191205
  4. BACTRIM DS [Concomitant]
     Active Substance: SULFAMETHOXAZOLE\TRIMETHOPRIM
     Indication: Prophylaxis
     Dosage: WEEKENDS
     Route: 048
     Dates: start: 20190825
  5. DIFLUCAN [Concomitant]
     Active Substance: FLUCONAZOLE
     Indication: Prophylaxis
     Dosage: UNK UNK, QD
     Route: 048
     Dates: start: 20190825, end: 20190909
  6. CEFEPIME [Concomitant]
     Active Substance: CEFEPIME HYDROCHLORIDE
     Indication: Pyrexia
     Dosage: UNK, Q8H
     Route: 042
     Dates: start: 20190829, end: 20190905
  7. KEPPRA [Concomitant]
     Active Substance: LEVETIRACETAM
     Indication: Seizure prophylaxis
     Dosage: 500 MG, BID
     Route: 048
     Dates: start: 20190820, end: 20190909
  8. FLUDARABINE [Concomitant]
     Active Substance: FLUDARABINE PHOSPHATE
     Indication: Chemotherapy
     Dosage: 30 MG/KG, Q24H (DAY 6, 5, 4, 3)
     Route: 065
  9. CYTOXAN [Concomitant]
     Active Substance: CYCLOPHOSPHAMIDE
     Indication: Chemotherapy
     Dosage: 500 MG/M2, Q24H (2 DOSES ON DAY 6 AND 5)
     Route: 065

REACTIONS (4)
  - Cytokine release syndrome [Recovered/Resolved]
  - Drug ineffective [Unknown]
  - Full blood count abnormal [Recovered/Resolved]
  - Full blood count abnormal [Not Recovered/Not Resolved]

NARRATIVE: CASE EVENT DATE: 20191204
